FAERS Safety Report 23712511 (Version 1)
Quarter: 2024Q2

REPORT INFORMATION
  Report Type: Spontaneous
  Country: RO (occurrence: None)
  Receive Date: 20240405
  Receipt Date: 20240405
  Transmission Date: 20240715
  Serious: Yes (Other)
  Sender: FDA-Public Use
  Company Number: 2024A076454

PATIENT
  Age: 68 Year

DRUGS (2)
  1. FASLODEX [Suspect]
     Active Substance: FULVESTRANT
     Dosage: 500 MG, EVERY FOUR WEEKS
     Route: 030
     Dates: start: 2022, end: 202312
  2. PALBOCICLIB [Suspect]
     Active Substance: PALBOCICLIB
     Dosage: 125 MG, CYCLIC (D1-D21)125.0MG EVERY CYCLE
     Dates: start: 2022, end: 202312

REACTIONS (6)
  - Rash erythematous [Recovered/Resolved]
  - Scleroderma [Unknown]
  - General physical health deterioration [Recovered/Resolved]
  - Hypersensitivity [Unknown]
  - Neoplasm progression [Unknown]
  - Pyrexia [Recovered/Resolved]

NARRATIVE: CASE EVENT DATE: 20231101
